FAERS Safety Report 13451741 (Version 1)
Quarter: 2017Q2

REPORT INFORMATION
  Report Type: Spontaneous
  Country: US (occurrence: US)
  Receive Date: 20170418
  Receipt Date: 20170418
  Transmission Date: 20170830
  Serious: Yes (Death, Life-Threatening, Hospitalization, Disabling)
  Sender: FDA-Public Use
  Company Number: None

PATIENT
  Age: 59 Year
  Sex: Male
  Weight: 72.64 kg

DRUGS (22)
  1. MILRINONE 400MCG/ML-550ML 3 DAY BAG ONCE A WEEK [Suspect]
     Active Substance: MILRINONE
     Indication: CARDIAC FAILURE
     Dosage: 400MCG/ML 550ML 3 DAY BAG ONCE A WEEK
     Dates: start: 20151221, end: 20170301
  2. ISOSORB [Concomitant]
  3. METOPROLOL SUCCINATE. [Concomitant]
     Active Substance: METOPROLOL SUCCINATE
  4. PEPTO-BISMOL [Concomitant]
     Active Substance: BISMUTH SUBSALICYLATE
  5. MILRINONE 400MCG/ML-720ML 4 DAY BAG ONCE A WEEK [Suspect]
     Active Substance: MILRINONE
     Dosage: 400MCG/ML-720 ML 4 DAY BAG ONCE A WEEK
  6. TORSEMIDE. [Concomitant]
     Active Substance: TORSEMIDE
  7. POLYETHELENE GLYCOL [Concomitant]
     Active Substance: POLYETHYLENE GLYCOL 3350
  8. DOCUSATE SODIUM. [Concomitant]
     Active Substance: DOCUSATE SODIUM
  9. HYDROCO/APAP [Concomitant]
     Active Substance: ACETAMINOPHEN\HYDROCODONE
  10. AMOXICILLIN. [Concomitant]
     Active Substance: AMOXICILLIN
  11. MYLANTA [Concomitant]
     Active Substance: ALUMINUM HYDROXIDE\DIMETHICONE\MAGNESIUM HYDROXIDE
  12. CARVEDEDIL [Concomitant]
  13. BUMETANIDE. [Concomitant]
     Active Substance: BUMETANIDE
  14. CARAFATE [Concomitant]
     Active Substance: SUCRALFATE
  15. ELIQUIS [Concomitant]
     Active Substance: APIXABAN
  16. COLCHICINE. [Concomitant]
     Active Substance: COLCHICINE
  17. HYDRALAZINE [Concomitant]
     Active Substance: HYDRALAZINE HYDROCHLORIDE
  18. KLOR-CON [Concomitant]
     Active Substance: POTASSIUM CHLORIDE
  19. FUROSEMIDE. [Concomitant]
     Active Substance: FUROSEMIDE
  20. PRIMACOR [Concomitant]
     Active Substance: MILRINONE LACTATE
  21. EX-LAX MAXIMUM STRENGTH STIMULANT LAXATIVE [Concomitant]
     Active Substance: SENNOSIDES
  22. ALIEVE [Concomitant]

REACTIONS (2)
  - Medical device site thrombosis [None]
  - Chemical burn [None]
